FAERS Safety Report 17328741 (Version 4)
Quarter: 2020Q2

REPORT INFORMATION
  Report Type: Spontaneous
  Country: US (occurrence: US)
  Receive Date: 20200127
  Receipt Date: 20200402
  Transmission Date: 20200713
  Serious: Yes (Other)
  Sender: FDA-Public Use
  Company Number: US-009507513-2001USA009148

PATIENT
  Age: 18 Year
  Sex: Female
  Weight: 68.48 kg

DRUGS (1)
  1. NEXPLANON [Suspect]
     Active Substance: ETONOGESTREL
     Indication: CONTRACEPTION
     Dosage: 68 MILLIGRAM
     Route: 023
     Dates: start: 20191105

REACTIONS (3)
  - Unintended pregnancy [Recovered/Resolved]
  - Abortion induced [Recovered/Resolved]
  - Pregnancy with implant contraceptive [Recovered/Resolved]

NARRATIVE: CASE EVENT DATE: 20191106
